FAERS Safety Report 9014706 (Version 6)
Quarter: 2014Q3

REPORT INFORMATION
  Report Type: Spontaneous
  Country: US (occurrence: US)
  Receive Date: 20130115
  Receipt Date: 20140714
  Transmission Date: 20150326
  Serious: Yes (Hospitalization, Other)
  Sender: FDA-Public Use
  Company Number: US-009507513-1301USA005185

PATIENT
  Sex: Female
  Weight: 106.58 kg

DRUGS (2)
  1. NUVARING [Suspect]
     Active Substance: ETHINYL ESTRADIOL\ETONOGESTREL
     Indication: CONTRACEPTION
     Dosage: UNK
     Route: 067
     Dates: start: 20030214, end: 20080331
  2. NUVARING [Suspect]
     Active Substance: ETHINYL ESTRADIOL\ETONOGESTREL
     Dosage: UNK
     Route: 067
     Dates: start: 20090909, end: 20110625

REACTIONS (43)
  - Cardiac failure acute [Unknown]
  - Exposure during pregnancy [Unknown]
  - Goitre [Not Recovered/Not Resolved]
  - Varicose vein [Unknown]
  - Thyroid disorder [Unknown]
  - Thyroid cancer [Unknown]
  - Autoimmune thyroiditis [Unknown]
  - Gun shot wound [Recovered/Resolved]
  - Anxiety [Unknown]
  - Fatigue [Unknown]
  - Dizziness [Unknown]
  - Abortion spontaneous [Unknown]
  - Urinary tract infection [Unknown]
  - Pulmonary hypertension [Unknown]
  - Post procedural hypothyroidism [Unknown]
  - Pulmonary embolism [Recovered/Resolved]
  - Seasonal allergy [Unknown]
  - Depression [Unknown]
  - Vaginal discharge [Unknown]
  - Menstruation irregular [Unknown]
  - Coagulopathy [Unknown]
  - Cardiac disorder [Unknown]
  - Musculoskeletal chest pain [Unknown]
  - Dilatation ventricular [Unknown]
  - Thyroid neoplasm [Unknown]
  - Cholecystectomy [Unknown]
  - Syncope [Unknown]
  - Migraine [Unknown]
  - Road traffic accident [Unknown]
  - Thyroidectomy [Unknown]
  - Thyroid operation [Unknown]
  - Dizziness [Unknown]
  - Patellofemoral pain syndrome [Unknown]
  - Joint effusion [Unknown]
  - Mitral valve incompetence [Unknown]
  - Systolic dysfunction [Unknown]
  - Orthostatic hypotension [Unknown]
  - Hypertension [Unknown]
  - Heart rate irregular [Unknown]
  - Fibula fracture [Unknown]
  - Papilloma viral infection [Unknown]
  - Headache [Unknown]
  - Inappropriate schedule of drug administration [Unknown]

NARRATIVE: CASE EVENT DATE: 20030620
